FAERS Safety Report 16761331 (Version 2)
Quarter: 2019Q4

REPORT INFORMATION
  Report Type: Spontaneous
  Country: FR (occurrence: FR)
  Receive Date: 20190830
  Receipt Date: 20191211
  Transmission Date: 20200122
  Serious: Yes (Hospitalization)
  Sender: FDA-Public Use
  Company Number: FR-AMERICAN REGENT INC-2019001886

PATIENT
  Age: 26 Year
  Sex: Female

DRUGS (3)
  1. VENOFER [Suspect]
     Active Substance: IRON SUCROSE
     Indication: ANAEMIA
     Dosage: 600 MILLIGRAM, 1 CYCLICAL
     Route: 042
     Dates: start: 20190713, end: 20190715
  2. DOLIPRANE [Suspect]
     Active Substance: ACETAMINOPHEN
     Indication: GAIT DISTURBANCE
     Dosage: 1 DOSAGE FORM, AS REQUIRED
     Route: 048
     Dates: start: 20190719
  3. SPASFON (PHLOROGLUCINOL/TRIMETHYLPHLOROGLUCINOL) [Suspect]
     Active Substance: PHLOROGLUCINOL\1,3,5-TRIMETHOXYBENZENE
     Indication: GAIT DISTURBANCE
     Dosage: 1 DOSAGE FORM, AS REQUIRED
     Route: 048
     Dates: start: 20190719

REACTIONS (4)
  - Abdominal pain [Recovered/Resolved]
  - Foetal death [Recovered/Resolved]
  - Foetal movement disorder [Not Recovered/Not Resolved]
  - Maternal exposure during pregnancy [Unknown]

NARRATIVE: CASE EVENT DATE: 20190713
